FAERS Safety Report 13165894 (Version 1)
Quarter: 2017Q1

REPORT INFORMATION
  Report Type: Spontaneous
  Country: US (occurrence: US)
  Receive Date: 20170126
  Receipt Date: 20170126
  Transmission Date: 20170428
  Serious: Yes (Hospitalization)
  Sender: FDA-Public Use
  Company Number: None

PATIENT
  Age: 67 Year
  Sex: Male
  Weight: 102.9 kg

DRUGS (1)
  1. FUROSEMIDE. [Suspect]
     Active Substance: FUROSEMIDE
     Indication: HYPERTENSION
     Dosage: MG PO
     Route: 048
     Dates: start: 20050727, end: 20161103

REACTIONS (5)
  - Weight decreased [None]
  - Dizziness [None]
  - Fall [None]
  - Orthostatic intolerance [None]
  - Diarrhoea [None]

NARRATIVE: CASE EVENT DATE: 20161103
